FAERS Safety Report 19096621 (Version 1)
Quarter: 2021Q2

REPORT INFORMATION
  Report Type: Spontaneous
  Country: US (occurrence: US)
  Receive Date: 20210405
  Receipt Date: 20210405
  Transmission Date: 20210717
  Serious: Yes (Other)
  Sender: FDA-Public Use
  Company Number: None

PATIENT
  Age: 69 Year
  Sex: Female
  Weight: 112 kg

DRUGS (1)
  1. REMICADE [Suspect]
     Active Substance: INFLIXIMAB
     Indication: RHEUMATOID ARTHRITIS
     Route: 041
     Dates: start: 20210222, end: 20210405

REACTIONS (6)
  - Pruritus [None]
  - Urticaria [None]
  - Infusion related reaction [None]
  - Drug effect less than expected [None]
  - Therapy change [None]
  - Chest discomfort [None]

NARRATIVE: CASE EVENT DATE: 20210405
